FAERS Safety Report 11288629 (Version 1)
Quarter: 2015Q3

REPORT INFORMATION
  Report Type: Report from Study
  Country: US (occurrence: US)
  Receive Date: 20150721
  Receipt Date: 20150721
  Transmission Date: 20151125
  Serious: Yes (Hospitalization, Other)
  Sender: FDA-Public Use
  Company Number: US-ASTRAZENECA-2015SE13741

PATIENT
  Age: 47 Year
  Sex: Female
  Weight: 136.1 kg

DRUGS (12)
  1. VANCOMYCIN [Suspect]
     Active Substance: VANCOMYCIN
     Route: 065
  2. ELESTRIN [Concomitant]
     Active Substance: ESTRADIOL
     Dosage: ONCE A DAY
  3. LYNPARZA [Suspect]
     Active Substance: OLAPARIB
     Indication: OVARIAN CANCER
     Route: 048
  4. TOPROL XL [Suspect]
     Active Substance: METOPROLOL SUCCINATE
     Route: 048
  5. LYNPARZA [Suspect]
     Active Substance: OLAPARIB
     Indication: OVARIAN CANCER
     Route: 048
     Dates: start: 201503
  6. LYNPARZA [Suspect]
     Active Substance: OLAPARIB
     Indication: OVARIAN CANCER
     Route: 048
     Dates: start: 201503
  7. LYNPARZA [Suspect]
     Active Substance: OLAPARIB
     Indication: OVARIAN CANCER
     Route: 048
     Dates: start: 20150205, end: 201503
  8. CLINDAMYCIN [Concomitant]
     Active Substance: CLINDAMYCIN\CLINDAMYCIN PHOSPHATE
     Dosage: 300MG ONE P.O TID
  9. NYSTATIN. [Concomitant]
     Active Substance: NYSTATIN
     Dosage: P.R.N.
  10. LEXAPRO [Concomitant]
     Active Substance: ESCITALOPRAM OXALATE
     Dosage: 20 MG DAILY
  11. NORVASC [Concomitant]
     Active Substance: AMLODIPINE BESYLATE
     Dosage: ONE DAILY
  12. ERTAPENEM [Concomitant]
     Active Substance: ERTAPENEM

REACTIONS (16)
  - Urinary incontinence [Unknown]
  - Nausea [Recovered/Resolved]
  - Pyrexia [Unknown]
  - Myalgia [Unknown]
  - Blood creatinine increased [Unknown]
  - Fatigue [Unknown]
  - Renal impairment [Unknown]
  - Muscle spasms [Unknown]
  - Pelvic cyst [Unknown]
  - Vomiting [Unknown]
  - Anaemia [Unknown]
  - Rash [Unknown]
  - Rash macular [Unknown]
  - Pneumonitis [Unknown]
  - Abdominal pain [Unknown]
  - Hypoxia [Unknown]

NARRATIVE: CASE EVENT DATE: 201503
